FAERS Safety Report 4592445-4 (Version None)
Quarter: 2005Q1

REPORT INFORMATION
  Report Type: 
  Country: None (occurrence: None)
  Receive Date: 20050228
  Receipt Date: 20050131
  Transmission Date: 20050727
  Serious: No
  Sender: FDA-Public Use
  Company Number: US-BRISTOL-MYERS SQUIBB COMPANY-12843017

PATIENT
  Age: 8 Year
  Sex: Male
  Weight: 20 kg

DRUGS (5)
  1. ABILIFY [Suspect]
     Indication: ATTENTION DEFICIT/HYPERACTIVITY DISORDER
     Route: 048
     Dates: start: 20050126, end: 20050129
  2. ABILIFY [Suspect]
     Indication: AGITATION
     Route: 048
     Dates: start: 20050126, end: 20050129
  3. ABILIFY [Suspect]
     Indication: AGGRESSION
     Route: 048
     Dates: start: 20050126, end: 20050129
  4. ADDERALL XR 25 [Concomitant]
  5. CLONIDINE [Concomitant]

REACTIONS (1)
  - TRISMUS [None]
